FAERS Safety Report 5114354-4 (Version None)
Quarter: 2006Q3

REPORT INFORMATION
  Report Type: 
  Country: None (occurrence: None)
  Receive Date: 20060731
  Receipt Date: 20060606
  Transmission Date: 20061208
  Serious: No
  Sender: FDA-Public Use
  Company Number: 2006PV015104

PATIENT
  Age: 44 Year
  Sex: Female
  Weight: 71.2147 kg

DRUGS (3)
  1. BYETTA [Suspect]
     Indication: DIABETES MELLITUS NON-INSULIN-DEPENDENT
     Dosage: SEE IMAGE
     Route: 058
     Dates: start: 20060418, end: 20060517
  2. BYETTA [Suspect]
     Indication: DIABETES MELLITUS NON-INSULIN-DEPENDENT
     Dosage: SEE IMAGE
     Route: 058
     Dates: start: 20060518
  3. METFORMIN [Concomitant]

REACTIONS (4)
  - ANEURYSM [None]
  - NAUSEA [None]
  - VERTIGO [None]
  - VOMITING [None]
